FAERS Safety Report 5767524-6 (Version None)
Quarter: 2008Q2

REPORT INFORMATION
  Report Type: 
  Country: None (occurrence: None)
  Receive Date: 20080612
  Receipt Date: 20080530
  Transmission Date: 20081010
  Serious: Yes (Disabling)
  Sender: FDA-Public Use
  Company Number: IT-JNJFOC-20080506274

PATIENT
  Sex: Female

DRUGS (5)
  1. LEVOFLOXACIN [Suspect]
     Indication: PROPHYLAXIS
     Route: 048
  2. TICLOPIDINE HCL [Concomitant]
     Route: 065
  3. EUGLUCON [Concomitant]
     Route: 065
  4. VALPRESSION [Concomitant]
     Route: 065
  5. LANOXIN [Concomitant]
     Route: 065

REACTIONS (7)
  - AGGRESSION [None]
  - AMNESIA [None]
  - APHASIA [None]
  - CEREBRAL ISCHAEMIA [None]
  - DISORIENTATION [None]
  - HEMIPARESIS [None]
  - PSYCHOTIC DISORDER [None]
